FAERS Safety Report 25451580 (Version 1)
Quarter: 2025Q2

REPORT INFORMATION
  Report Type: Spontaneous
  Country: KR (occurrence: KR)
  Receive Date: 20250618
  Receipt Date: 20250618
  Transmission Date: 20250716
  Serious: Yes (Other)
  Sender: ASTELLAS
  Company Number: KR-ASTELLAS-2025-AER-031822

PATIENT
  Age: 71 Year
  Sex: Male

DRUGS (3)
  1. XTANDI [Suspect]
     Active Substance: ENZALUTAMIDE
     Indication: Prostate cancer
     Route: 048
     Dates: start: 2024
  2. XTANDI [Suspect]
     Active Substance: ENZALUTAMIDE
     Dosage: TWO CAPSULES
     Route: 048
  3. XTANDI [Suspect]
     Active Substance: ENZALUTAMIDE
     Dosage: THREE CAPSULES PER DAY
     Route: 048

REACTIONS (15)
  - Foreign body in throat [Unknown]
  - Fatigue [Unknown]
  - Decreased appetite [Unknown]
  - Oesophagitis [Recovering/Resolving]
  - Insomnia [Unknown]
  - Feeding disorder [Unknown]
  - Weight decreased [Unknown]
  - Gastritis [Unknown]
  - Throat irritation [Unknown]
  - Gastrooesophageal reflux disease [Recovering/Resolving]
  - Oropharyngeal pain [Unknown]
  - Regurgitation [Recovering/Resolving]
  - Product use complaint [Unknown]
  - Product taste abnormal [Unknown]
  - Product solubility abnormal [Unknown]
